FAERS Safety Report 9125139 (Version 1)
Quarter: 2013Q1

REPORT INFORMATION
  Report Type: Spontaneous
  Country: DE (occurrence: DE)
  Receive Date: 20130121
  Receipt Date: 20130121
  Transmission Date: 20140127
  Serious: Yes (Other)
  Sender: FDA-Public Use
  Company Number: GXKR2013DE000583

PATIENT
  Age: 71 Year
  Sex: Female

DRUGS (5)
  1. FLECAINIDE [Suspect]
     Dosage: 50 MG, UNK
     Route: 048
  2. MIRTAZAPIN [Concomitant]
     Route: 048
  3. HCT [Concomitant]
     Route: 048
  4. RIVAROXABAN [Concomitant]
     Route: 065
  5. BETA BLOCKING AGENTS [Concomitant]
     Route: 048

REACTIONS (1)
  - Alveolitis [Unknown]
